FAERS Safety Report 7199164-9 (Version None)
Quarter: 2010Q4

REPORT INFORMATION
  Report Type: 
  Country: None (occurrence: None)
  Receive Date: 20101215
  Receipt Date: 20101202
  Transmission Date: 20110411
  Serious: Yes (Other)
  Sender: FDA-Public Use
  Company Number: 022262

PATIENT
  Sex: Male
  Weight: 94.6 kg

DRUGS (3)
  1. KEPPRA [Suspect]
     Indication: COMPLEX PARTIAL SEIZURES
     Dosage: (500 MG BID ORAL)
     Route: 048
     Dates: start: 20100820, end: 20101118
  2. LAMICTAL [Concomitant]
  3. VITAMIN B COMPLEX /00059201/ [Concomitant]

REACTIONS (6)
  - AFFECTIVE DISORDER [None]
  - DEPRESSION [None]
  - DUODENAL ULCER [None]
  - IRON DEFICIENCY [None]
  - THROMBOCYTOSIS [None]
  - TRANSFERRIN SATURATION DECREASED [None]
